FAERS Safety Report 5951494-1 (Version None)
Quarter: 2008Q4

REPORT INFORMATION
  Report Type: 
  Country: None (occurrence: None)
  Receive Date: 20081110
  Receipt Date: 20081105
  Transmission Date: 20090506
  Serious: Yes (Death, Life-Threatening, Other)
  Sender: FDA-Public Use
  Company Number: 2007SP007295

PATIENT
  Age: 80 Year
  Sex: Male
  Weight: 39 kg

DRUGS (14)
  1. TEMODAL [Suspect]
     Indication: GLIOBLASTOMA MULTIFORME
     Dosage: 150 MG/M2;QD;PO 200 MG/M2;QD;PO 200 MG/M2;QD;PO
     Route: 048
     Dates: start: 20061004, end: 20061008
  2. TEMODAL [Suspect]
     Indication: GLIOBLASTOMA MULTIFORME
     Dosage: 150 MG/M2;QD;PO 200 MG/M2;QD;PO 200 MG/M2;QD;PO
     Route: 048
     Dates: start: 20061124, end: 20061128
  3. TEMODAL [Suspect]
     Indication: GLIOBLASTOMA MULTIFORME
     Dosage: 150 MG/M2;QD;PO 200 MG/M2;QD;PO 200 MG/M2;QD;PO
     Route: 048
     Dates: start: 20061222, end: 20061226
  4. BASEN (VOGLIBOSE) [Suspect]
     Indication: HYPERTENSION
     Dosage: 0.2 MG; PO
     Route: 048
     Dates: end: 20061107
  5. NATEGLINIDE [Suspect]
     Indication: HYPERTENSION
     Dosage: 30 MG; PO
     Route: 048
     Dates: end: 20061107
  6. PREDONINE [Concomitant]
  7. PARULEON [Concomitant]
  8. MAGNESIUM OXIDE [Concomitant]
  9. DEPAS [Concomitant]
  10. NAUZELIN [Concomitant]
  11. LASIX [Concomitant]
  12. PREDOPA [Concomitant]
  13. UBRETID [Concomitant]
  14. EBRANTIL [Concomitant]

REACTIONS (11)
  - ACARODERMATITIS [None]
  - ASPIRATION [None]
  - CONDITION AGGRAVATED [None]
  - DISSEMINATED INTRAVASCULAR COAGULATION [None]
  - GASTRIC ULCER [None]
  - GUTTATE PSORIASIS [None]
  - HEPATIC FUNCTION ABNORMAL [None]
  - NEUTROPHIL COUNT INCREASED [None]
  - PNEUMONIA [None]
  - RENAL IMPAIRMENT [None]
  - URINARY RETENTION [None]
